FAERS Safety Report 8400454-X (Version None)
Quarter: 2012Q2

REPORT INFORMATION
  Report Type: 
  Country: None (occurrence: None)
  Receive Date: 20120531
  Receipt Date: 20120518
  Transmission Date: 20120825
  Serious: Yes (Death, Other)
  Sender: FDA-Public Use
  Company Number: DE-CELGENEUS-062-21660-12012099

PATIENT
  Age: 65 Year
  Sex: Female
  Weight: 70 kg

DRUGS (8)
  1. OPIATE [Concomitant]
     Route: 065
  2. DEXAMETHASONE [Concomitant]
     Route: 041
  3. HYDROMORPHON [Concomitant]
     Route: 065
     Dates: start: 20120101
  4. GRANISETRON HYDROCHLORIDE [Concomitant]
     Route: 041
  5. DIPYRONE TAB [Concomitant]
     Route: 065
     Dates: start: 20120101
  6. ZOMETA [Concomitant]
     Dosage: .1333 MILLIGRAM
     Route: 065
     Dates: start: 20120101
  7. ABRAXANE [Suspect]
     Route: 065
     Dates: start: 20111227, end: 20111227
  8. ARLEVERT [Concomitant]
     Indication: DIZZINESS
     Route: 065
     Dates: start: 20120101

REACTIONS (6)
  - STOMATITIS [None]
  - PHARYNGITIS [None]
  - NEUTROPENIA [None]
  - URINARY TRACT INFECTION [None]
  - NEOPLASM PROGRESSION [None]
  - DYSPLASIA [None]
